FAERS Safety Report 23251252 (Version 2)
Quarter: 2023Q4

REPORT INFORMATION
  Report Type: Spontaneous
  Country: JP (occurrence: JP)
  Receive Date: 20231201
  Receipt Date: 20231227
  Transmission Date: 20240110
  Serious: Yes (Death, Hospitalization, Other)
  Sender: FDA-Public Use
  Company Number: JP-BAYER-2023A171790

PATIENT
  Age: 72 Year
  Sex: Male

DRUGS (1)
  1. KOVALTRY [Suspect]
     Active Substance: ANTIHEMOPHILIC FACTOR, HUMAN RECOMBINANT
     Indication: Factor VIII deficiency
     Dosage: 2000IU
     Dates: end: 20231116

REACTIONS (3)
  - Cardiac failure acute [Fatal]
  - Nephrolithiasis [Fatal]
  - General physical health deterioration [None]

NARRATIVE: CASE EVENT DATE: 20231011
